FAERS Safety Report 7379279-2 (Version None)
Quarter: 2011Q1

REPORT INFORMATION
  Report Type: 
  Country: None (occurrence: None)
  Receive Date: 20110328
  Receipt Date: 20101209
  Transmission Date: 20110831
  Serious: Yes (Other)
  Sender: FDA-Public Use
  Company Number: DE-AMGEN-DEUSP2010004070

PATIENT
  Age: 71 Year
  Sex: Female
  Weight: 68 kg

DRUGS (3)
  1. INFLUENZA VACCINE [Concomitant]
  2. NPLATE [Suspect]
     Indication: IDIOPATHIC THROMBOCYTOPENIC PURPURA
     Dosage: UNK UNK, QWK
     Route: 058
     Dates: start: 20100615, end: 20101202
  3. NPLATE [Suspect]
     Dosage: 3 A?G/KG, UNK
     Dates: start: 20101101

REACTIONS (2)
  - PLATELET COUNT DECREASED [None]
  - NASOPHARYNGITIS [None]
